FAERS Safety Report 8552021-5 (Version None)
Quarter: 2012Q3

REPORT INFORMATION
  Report Type: 
  Country: None (occurrence: None)
  Receive Date: 20120730
  Receipt Date: 20120716
  Transmission Date: 20120928
  Serious: Yes (Other)
  Sender: FDA-Public Use
  Company Number: CHPA2012US015700

PATIENT
  Age: 70 Year
  Sex: Female

DRUGS (4)
  1. DRUG THERAPY NOS [Concomitant]
     Dosage: UNK, UNK
  2. IMITREX ^GLAXO^ [Concomitant]
     Indication: MIGRAINE
     Dosage: 1 TO 2 UNK, PRN
  3. EXCEDRIN TENSION HEADACHE CAPLETS [Suspect]
     Indication: PROPHYLAXIS
     Dosage: 2 DF, QD
     Route: 048
  4. BISOPROLOL FUMARATE AND HYDROCHLOROTHIAZIDE [Concomitant]
     Indication: HYPERTENSION
     Dosage: UNK, UNK

REACTIONS (5)
  - DRUG DEPENDENCE [None]
  - INCORRECT DRUG ADMINISTRATION DURATION [None]
  - DISEASE RECURRENCE [None]
  - OFF LABEL USE [None]
  - HEADACHE [None]
